FAERS Safety Report 10348765 (Version 1)
Quarter: 2014Q3

REPORT INFORMATION
  Report Type: Spontaneous
  Country: FR (occurrence: None)
  Receive Date: 20140725
  Receipt Date: 20140725
  Transmission Date: 20150326
  Serious: Yes (Hospitalization)
  Sender: FDA-Public Use
  Company Number: 2014-20033

PATIENT
  Age: 85 Year
  Sex: Female

DRUGS (1)
  1. EYLEA [Suspect]
     Active Substance: AFLIBERCEPT
     Indication: PRODUCT USED FOR UNKNOWN INDICATION
     Dosage: 1 DF INTRAOCULAR
     Route: 031
     Dates: start: 20140124, end: 20140606

REACTIONS (2)
  - Hypertension [None]
  - Epistaxis [None]

NARRATIVE: CASE EVENT DATE: 20140615
